FAERS Safety Report 8838500 (Version 1)
Quarter: 2012Q4

REPORT INFORMATION
  Report Type: 
  Country: US (occurrence: US)
  Receive Date: 20121012
  Receipt Date: 20121012
  Transmission Date: 20130627
  Serious: Yes (Death)
  Sender: FDA-Public Use
  Company Number: US-PFIZER INC-2012251470

PATIENT
  Sex: Male

DRUGS (1)
  1. RAPAMUNE [Suspect]
     Indication: BONE MARROW TRANSPLANT
     Dosage: 2 mg,daily

REACTIONS (2)
  - Sepsis [Fatal]
  - Off label use [Unknown]
